FAERS Safety Report 5924596-3 (Version None)
Quarter: 2008Q4

REPORT INFORMATION
  Report Type: 
  Country: None (occurrence: None)
  Receive Date: 20081020
  Receipt Date: 20081010
  Transmission Date: 20090506
  Serious: Yes (Hospitalization)
  Sender: FDA-Public Use
  Company Number: FR-PFIZER INC-2008086234

PATIENT
  Sex: Male

DRUGS (10)
  1. TAHOR [Suspect]
     Route: 048
     Dates: start: 20080827, end: 20080901
  2. LASIX [Suspect]
     Route: 048
     Dates: start: 20080828, end: 20080901
  3. TRAMADOL HCL [Suspect]
     Dosage: TEXT:4 DF DAILY EVERY DAY TDD:4 DF
     Route: 048
     Dates: start: 20080827, end: 20080901
  4. RAMIPRIL [Concomitant]
     Indication: HYPERTENSION
  5. AMLODIPINE [Concomitant]
     Indication: HYPERTENSION
  6. ACUPAN [Concomitant]
  7. BEVITINE [Concomitant]
  8. PANTOPRAZOLE SODIUM [Concomitant]
  9. COLCHIMAX [Concomitant]
  10. LOVENOX [Concomitant]

REACTIONS (1)
  - RASH PUSTULAR [None]
